FAERS Safety Report 5257374-1 (Version None)
Quarter: 2007Q1

REPORT INFORMATION
  Report Type: 
  Country: None (occurrence: None)
  Receive Date: 20061207
  Receipt Date: 20040811
  Transmission Date: 20070707
  Serious: No
  Sender: FDA-Public Use
  Company Number: 2004UW17248

PATIENT
  Sex: Female

DRUGS (1)
  1. ACCOLATE [Suspect]

REACTIONS (1)
  - ALLERGIC GRANULOMATOUS ANGIITIS [None]
